FAERS Safety Report 9499615 (Version 1)
Quarter: 2013Q1

REPORT INFORMATION
  Report Type: Spontaneous
  Country: US (occurrence: None)
  Receive Date: 20130107
  Receipt Date: 20130107
  Transmission Date: 20140127
  Serious: No
  Sender: FDA-Public Use
  Company Number: PHEH2012US020834

PATIENT
  Age: 54 Year
  Sex: Male
  Weight: 88.9 kg

DRUGS (7)
  1. GILENYA (FINGOLIMOD HYDROCHLORIDE) [Suspect]
     Indication: MULTIPLE SCLEROSIS
     Route: 048
     Dates: start: 20120917
  2. PROVIGIL(MODAFINIL) [Concomitant]
  3. CIALISW (TADALAFIL) [Concomitant]
  4. CLARITIN (LORATADINE) [Concomitant]
  5. FISH OIL (FISH OIL) [Concomitant]
  6. VITAMIN D (ERGOCALCIFEROL) [Concomitant]
  7. AMBIEN (ZOLPIDEM TARTRATE) [Concomitant]

REACTIONS (1)
  - Rash [None]
